FAERS Safety Report 17509248 (Version 1)
Quarter: 2020Q1

REPORT INFORMATION
  Report Type: Spontaneous
  Country: US (occurrence: US)
  Receive Date: 20200225
  Receipt Date: 20200225
  Transmission Date: 20200409
  Serious: Yes (Hospitalization)
  Sender: FDA-Public Use
  Company Number: None

PATIENT
  Age: 75 Year
  Sex: Male

DRUGS (2)
  1. EMPAGLIFLOZIN (EMPAGLIFLOZIN 25MG TAB) [Suspect]
     Active Substance: EMPAGLIFLOZIN
     Dates: start: 20191203, end: 20200101
  2. DULAGLUTIDE (DULAGLUTIDE 1.5MG/0.5ML INJ, SOLN PEN) [Suspect]
     Active Substance: DULAGLUTIDE
     Dates: start: 20191106, end: 20200101

REACTIONS (5)
  - Diabetic ketoacidosis [None]
  - Vomiting [None]
  - Dizziness [None]
  - Nausea [None]
  - Diarrhoea [None]

NARRATIVE: CASE EVENT DATE: 20200101
